FAERS Safety Report 4704700-5 (Version None)
Quarter: 2005Q2

REPORT INFORMATION
  Report Type: 
  Country: None (occurrence: None)
  Receive Date: 20050630
  Receipt Date: 20050617
  Transmission Date: 20051028
  Serious: Yes (Other)
  Sender: FDA-Public Use
  Company Number: 2005090343

PATIENT
  Age: 64 Year
  Sex: Male
  Weight: 111.1313 kg

DRUGS (2)
  1. CELEBREX [Suspect]
     Indication: ARTHRALGIA
     Dosage: 400 MG (200 MG, 2 IN 1 D), ORAL
     Route: 048
     Dates: start: 20041008, end: 20041012
  2. CELEBREX [Suspect]
     Indication: MUSCULOSKELETAL DISCOMFORT
     Dosage: 400 MG (200 MG, 2 IN 1 D), ORAL
     Route: 048
     Dates: start: 20041008, end: 20041012

REACTIONS (6)
  - ASTIGMATISM [None]
  - CATARACT [None]
  - CEREBROVASCULAR ACCIDENT [None]
  - OPTIC NERVE DISORDER [None]
  - PHOTOPSIA [None]
  - VISUAL ACUITY REDUCED [None]
